FAERS Safety Report 4568463-9 (Version None)
Quarter: 2005Q1

REPORT INFORMATION
  Report Type: 
  Country: None (occurrence: None)
  Receive Date: 20050131
  Receipt Date: 20050117
  Transmission Date: 20050727
  Serious: No
  Sender: FDA-Public Use
  Company Number: 02100-JPN-05-0035

PATIENT
  Age: 64 Year
  Sex: Male

DRUGS (8)
  1. CILOSTAZOL [Suspect]
     Indication: CEREBRAL INFARCTION
     Dosage: 200 MG
     Route: 048
     Dates: start: 20030728
  2. IOHEXOL [Suspect]
     Dosage: 100 ML
     Route: 042
     Dates: start: 20030801, end: 20030801
  3. REBAMIPIDE [Concomitant]
  4. OZAGREL SODIUM [Concomitant]
  5. EPERISONE HYDROCHLORIDE [Concomitant]
  6. ASPIRIN DIALUMINATE [Concomitant]
  7. TELMISARTAN [Concomitant]
  8. DOXAZOSIN MESYLATE [Concomitant]

REACTIONS (2)
  - CONDITION AGGRAVATED [None]
  - RENAL FAILURE CHRONIC [None]
